FAERS Safety Report 14967154 (Version 1)
Quarter: 2018Q2

REPORT INFORMATION
  Report Type: Report from Study
  Country: NO (occurrence: NO)
  Receive Date: 20180604
  Receipt Date: 20180604
  Transmission Date: 20180711
  Serious: No
  Sender: FDA-Public Use
  Company Number: NO-CHEPLA-C20170626_18

PATIENT
  Sex: Female

DRUGS (3)
  1. VALPROIC ACID. [Concomitant]
     Active Substance: VALPROIC ACID
     Indication: LEUKAEMIA RECURRENT
     Dosage: INITIAL INTRAVENOUS TREATMENT, LATER ORAL TREATMENT, MAXIMAL TOLERATED DOSE, GUIDED BY SERUM LEVELS
     Route: 048
  2. ATRA [Suspect]
     Active Substance: TRETINOIN
     Indication: LEUKAEMIA RECURRENT
     Dosage: 14 DAYS, REPEATED BY 12 WEEKS INTERVALS, 22.5 MG/MM2, TWICE DAILY
  3. VALPROIC ACID. [Concomitant]
     Active Substance: VALPROIC ACID
     Indication: LEUKAEMIA RECURRENT
     Dosage: INITIAL INTRAVENOUS TREATMENT, LATER ORAL TREATMENT, MAXIMAL TOLERATED DOSE, GUIDED BY SERUM LEVELS
     Route: 042

REACTIONS (1)
  - Product use in unapproved indication [Recovered/Resolved]
